FAERS Safety Report 5592573-0 (Version None)
Quarter: 2008Q1

REPORT INFORMATION
  Report Type: 
  Country: None (occurrence: None)
  Receive Date: 20080111
  Receipt Date: 20080102
  Transmission Date: 20080703
  Serious: Yes (Other)
  Sender: FDA-Public Use
  Company Number: 08H-161-0313654-00

PATIENT
  Age: 7 Year
  Sex: Female

DRUGS (5)
  1. VANCOMYCIN [Suspect]
     Indication: PNEUMONIA
  2. GENTAMICIN [Suspect]
     Indication: PNEUMONIA
  3. PHENOXYMETHYLPENICILLIN [Concomitant]
  4. ............... [Concomitant]
  5. ............... [Concomitant]

REACTIONS (3)
  - GASTROINTESTINAL HAEMORRHAGE [None]
  - PANCYTOPENIA [None]
  - RED MAN SYNDROME [None]
